FAERS Safety Report 23777974 (Version 1)
Quarter: 2024Q2

REPORT INFORMATION
  Report Type: Spontaneous
  Country: US (occurrence: US)
  Receive Date: 20240424
  Receipt Date: 20240424
  Transmission Date: 20240715
  Serious: No
  Sender: FDA-Public Use
  Company Number: US-APOTEX-2024AP004521

PATIENT
  Age: 75 Year
  Sex: Male

DRUGS (2)
  1. LENALIDOMIDE [Suspect]
     Active Substance: LENALIDOMIDE
     Indication: Myelodysplastic syndrome
     Dosage: 10 MILLIGRAM, QD
     Route: 065
     Dates: start: 20210616, end: 20230426
  2. LENALIDOMIDE [Suspect]
     Active Substance: LENALIDOMIDE
     Indication: 5q minus syndrome
     Dosage: 7.5 MILLIGRAM, QD
     Route: 065
     Dates: start: 20220513

REACTIONS (4)
  - TP53 gene mutation [Recovered/Resolved]
  - SF3B1 gene mutation [Recovered/Resolved]
  - RUNX1 gene mutation [Unknown]
  - DNMT3A gene mutation [Recovering/Resolving]
